FAERS Safety Report 15823336 (Version 3)
Quarter: 2019Q1

REPORT INFORMATION
  Report Type: Spontaneous
  Country: US (occurrence: US)
  Receive Date: 20190114
  Receipt Date: 20190116
  Transmission Date: 20190417
  Serious: No
  Sender: FDA-Public Use
  Company Number: US-PFIZER INC-2019015471

PATIENT
  Age: 63 Year
  Sex: Female
  Weight: 61.23 kg

DRUGS (1)
  1. LYRICA [Suspect]
     Active Substance: PREGABALIN
     Dosage: UNK

REACTIONS (4)
  - Neuralgia [Not Recovered/Not Resolved]
  - Viral infection [Not Recovered/Not Resolved]
  - Pain [Unknown]
  - Cough [Unknown]
